FAERS Safety Report 4708750-4 (Version None)
Quarter: 2005Q3

REPORT INFORMATION
  Report Type: 
  Country: None (occurrence: None)
  Receive Date: 20050706
  Receipt Date: 20050621
  Transmission Date: 20060218
  Serious: Yes (Hospitalization)
  Sender: FDA-Public Use
  Company Number: 2005JP001280

PATIENT
  Sex: Male

DRUGS (1)
  1. FK506 (TACROLIMUS) [Suspect]
     Indication: RENAL TRANSPLANT

REACTIONS (2)
  - CARDIAC ARREST [None]
  - POST PROCEDURAL COMPLICATION [None]
